FAERS Safety Report 5870536-5 (Version None)
Quarter: 2008Q3

REPORT INFORMATION
  Report Type: 
  Country: None (occurrence: None)
  Receive Date: 20080902
  Receipt Date: 20080818
  Transmission Date: 20090109
  Serious: Yes (Hospitalization, Other)
  Sender: FDA-Public Use
  Company Number: 2008S1015108

PATIENT
  Age: 75 Year
  Sex: Female

DRUGS (5)
  1. BYSTOLIC [Suspect]
     Indication: HYPERTENSION
     Dosage: 5 MG; DAILY; ORAL
     Route: 048
     Dates: start: 20080610, end: 20080601
  2. ATACAND [Concomitant]
  3. CADUET [Concomitant]
  4. METFORMIN HCL [Concomitant]
  5. ZANTAC [Concomitant]

REACTIONS (5)
  - ASTHENIA [None]
  - ATRIOVENTRICULAR BLOCK [None]
  - CHEST PAIN [None]
  - FATIGUE [None]
  - HYPOTENSION [None]
